FAERS Safety Report 9663368 (Version 2)
Quarter: 2013Q4

REPORT INFORMATION
  Report Type: Spontaneous
  Country: BR (occurrence: BR)
  Receive Date: 20131101
  Receipt Date: 20131101
  Transmission Date: 20140711
  Serious: Yes (Other)
  Sender: FDA-Public Use
  Company Number: BR-AMGEN-BRASP2012011386

PATIENT
  Age: 37 Year
  Sex: Female
  Weight: 83 kg

DRUGS (7)
  1. ENBREL [Suspect]
     Indication: PSORIATIC ARTHROPATHY
     Dosage: 50 MG, ONCE WEEKLY
     Route: 058
     Dates: start: 201206, end: 20130729
  2. PREDNISONE [Concomitant]
     Dosage: UNK
  3. PURAN T4 [Concomitant]
     Indication: HYPOTHYROIDISM
     Dosage: 150 MG, ONCE A DAY
     Dates: start: 2004
  4. DICLOFENAC SODIUM [Concomitant]
     Indication: SCIATICA
     Dosage: UNK UNK, AS NECESSARY
  5. LEFLUNOMIDE [Concomitant]
     Indication: PAIN
     Dosage: UNK
  6. ALENIA                             /01538101/ [Concomitant]
     Dosage: 400 MG, TWICE A DAY (EVERY 12 HOURS
     Dates: start: 2009
  7. SERTRALINE [Concomitant]
     Dosage: 2 TABLETS (50MG EACH)
     Dates: start: 201301

REACTIONS (8)
  - Arthropathy [Unknown]
  - Pain [Unknown]
  - Gait disturbance [Not Recovered/Not Resolved]
  - Weight increased [Not Recovered/Not Resolved]
  - Swelling [Not Recovered/Not Resolved]
  - Pruritus [Unknown]
  - Injection site pain [Not Recovered/Not Resolved]
  - Anaemia [Unknown]
